FAERS Safety Report 25499859 (Version 1)
Quarter: 2025Q3

REPORT INFORMATION
  Report Type: Spontaneous
  Country: US (occurrence: US)
  Receive Date: 20250701
  Receipt Date: 20250701
  Transmission Date: 20251020
  Serious: No
  Sender: PFIZER
  Company Number: US-PFIZER INC-202500131101

PATIENT
  Age: 81 Year
  Sex: Male

DRUGS (3)
  1. FUROSEMIDE [Suspect]
     Active Substance: FUROSEMIDE
     Dosage: UNK, EVERY OTHER DAY
  2. LISINOPRIL [Concomitant]
     Active Substance: LISINOPRIL
  3. VYNDAMAX [Concomitant]
     Active Substance: TAFAMIDIS
     Dosage: 61 MG, DAILY
     Route: 048

REACTIONS (2)
  - Micturition disorder [Unknown]
  - Off label use [Unknown]
